FAERS Safety Report 9781274 (Version 1)
Quarter: 2013Q4

REPORT INFORMATION
  Report Type: Spontaneous
  Country: FR (occurrence: FR)
  Receive Date: 20131224
  Receipt Date: 20131224
  Transmission Date: 20140711
  Serious: Yes (Hospitalization)
  Sender: FDA-Public Use
  Company Number: FR-ROCHE-1319096

PATIENT
  Age: 45 Year
  Sex: Female

DRUGS (3)
  1. APRANAX [Suspect]
     Indication: ARTHRALGIA
     Route: 048
     Dates: start: 20131007
  2. VOLTARENE (FRANCE) [Concomitant]
     Indication: ARTHRALGIA
     Route: 061
     Dates: start: 20131007
  3. OMEPRAZOLE [Concomitant]
     Indication: PRODUCT USED FOR UNKNOWN INDICATION

REACTIONS (4)
  - Drug eruption [Recovering/Resolving]
  - Vulvovaginal pruritus [Recovering/Resolving]
  - Burning sensation [Recovering/Resolving]
  - Genital lesion [Recovering/Resolving]
